FAERS Safety Report 19875090 (Version 1)
Quarter: 2021Q3

REPORT INFORMATION
  Report Type: Spontaneous
  Country: US (occurrence: US)
  Receive Date: 20210923
  Receipt Date: 20210923
  Transmission Date: 20211014
  Serious: No
  Sender: FDA-Public Use
  Company Number: US-BAYER-2021A215328

PATIENT
  Age: 37 Year
  Sex: Female

DRUGS (1)
  1. MIRENA [Suspect]
     Active Substance: LEVONORGESTREL
     Indication: CONTRACEPTION
     Dosage: 20 ?G, CONT
     Route: 015
     Dates: start: 20210222

REACTIONS (4)
  - Female sexual dysfunction [None]
  - Frustration tolerance decreased [None]
  - Intermenstrual bleeding [Recovered/Resolved]
  - Heavy menstrual bleeding [None]

NARRATIVE: CASE EVENT DATE: 20210222
